FAERS Safety Report 15424883 (Version 1)
Quarter: 2018Q3

REPORT INFORMATION
  Report Type: Report from Study
  Country: US (occurrence: US)
  Receive Date: 20180925
  Receipt Date: 20180925
  Transmission Date: 20181010
  Serious: Yes (Other)
  Sender: FDA-Public Use
  Company Number: US-PFIZER INC-2018375846

PATIENT
  Age: 15 Year
  Sex: Male

DRUGS (5)
  1. SIROLIMUS. [Suspect]
     Active Substance: SIROLIMUS
     Indication: IMMUNOSUPPRESSANT DRUG THERAPY
     Dosage: UNK, (PRE)
  2. SIROLIMUS. [Suspect]
     Active Substance: SIROLIMUS
     Indication: CORONARY ARTERY DISEASE
  3. SIROLIMUS. [Suspect]
     Active Substance: SIROLIMUS
     Indication: ANGIOPATHY
     Dosage: UNK (POST)
  4. CYCLOSPORINE. [Concomitant]
     Active Substance: CYCLOSPORINE
     Indication: IMMUNOSUPPRESSANT DRUG THERAPY
     Dosage: UNK (PRE)
  5. CYCLOSPORINE. [Concomitant]
     Active Substance: CYCLOSPORINE
     Dosage: UNK (POST)

REACTIONS (3)
  - Acute kidney injury [Unknown]
  - Staphylococcal infection [Unknown]
  - Pleural effusion [Unknown]
